FAERS Safety Report 21497744 (Version 1)
Quarter: 2022Q4

REPORT INFORMATION
  Report Type: Spontaneous
  Country: US (occurrence: US)
  Receive Date: 20221024
  Receipt Date: 20221024
  Transmission Date: 20230113
  Serious: No
  Sender: FDA-Public Use
  Company Number: US-BRISTOL-MYERS SQUIBB COMPANY-2022-125373

PATIENT
  Age: 79 Year
  Sex: Female
  Weight: 53.52 kg

DRUGS (1)
  1. REVLIMID [Suspect]
     Active Substance: LENALIDOMIDE
     Indication: Plasma cell myeloma
     Dosage: 1 CASULE DAILY FOR 21 DAYS ON, 7 ?DAYS OFF.
     Route: 048
     Dates: start: 20210930

REACTIONS (1)
  - Haemoglobin decreased [Not Recovered/Not Resolved]
